FAERS Safety Report 21283519 (Version 1)
Quarter: 2022Q3

REPORT INFORMATION
  Report Type: Spontaneous
  Country: US (occurrence: None)
  Receive Date: 20220901
  Receipt Date: 20220901
  Transmission Date: 20221027
  Serious: Yes (Death)
  Sender: FDA-Public Use
  Company Number: None

PATIENT
  Sex: Female

DRUGS (3)
  1. STELARA [Suspect]
     Active Substance: USTEKINUMAB
     Indication: Psoriasis
     Dosage: INJECT 1 SYRINGE (45MG) UNDER THE SKIN (SUBCUTANEOUS INJECTION) EVERY 12 WEEKS?
     Route: 058
     Dates: start: 20170310
  2. FLONASE SPR [Concomitant]
  3. RED YEAST POW RICE [Concomitant]

REACTIONS (1)
  - Death [None]
